FAERS Safety Report 5240422-2 (Version None)
Quarter: 2007Q1

REPORT INFORMATION
  Report Type: 
  Country: None (occurrence: None)
  Receive Date: 20061208
  Receipt Date: 20051107
  Transmission Date: 20070707
  Serious: Yes (Other)
  Sender: FDA-Public Use
  Company Number: 2005UW16841

PATIENT
  Age: 56 Year
  Sex: Female
  Weight: 92.986 kg

DRUGS (6)
  1. CRESTOR [Suspect]
     Indication: BLOOD CHOLESTEROL INCREASED
     Dosage: 10 MG QD PO
     Route: 048
  2. ZOLOFT [Concomitant]
  3. ASCAL [Concomitant]
  4. QUESTRAN [Concomitant]
  5. NEXIUM [Concomitant]
  6. IBUPROFEN [Concomitant]

REACTIONS (1)
  - HEPATIC STEATOSIS [None]
